FAERS Safety Report 6373023-3 (Version None)
Quarter: 2009Q3

REPORT INFORMATION
  Report Type: 
  Country: None (occurrence: None)
  Receive Date: 20090924
  Receipt Date: 20090723
  Transmission Date: 20100115
  Serious: No
  Sender: FDA-Public Use
  Company Number: US-ASTRAZENECA-2009SE06010

PATIENT
  Age: 33 Year
  Sex: Male
  Weight: 84.8 kg

DRUGS (2)
  1. SEROQUEL [Suspect]
     Route: 048
  2. LOVAZA [Concomitant]

REACTIONS (5)
  - BALANCE DISORDER [None]
  - INAPPROPRIATE AFFECT [None]
  - MIDDLE INSOMNIA [None]
  - SLEEP DISORDER [None]
  - SPEECH DISORDER [None]
